FAERS Safety Report 10673412 (Version 1)
Quarter: 2014Q4

REPORT INFORMATION
  Report Type: Spontaneous
  Country: US (occurrence: US)
  Receive Date: 20141224
  Receipt Date: 20141224
  Transmission Date: 20150529
  Serious: Yes (Hospitalization)
  Sender: FDA-Public Use
  Company Number: US-BIOGENIDEC-2014BI132749

PATIENT
  Age: 39 Year
  Sex: Female

DRUGS (4)
  1. HYDROCODONE [Concomitant]
     Active Substance: HYDROCODONE
  2. TYLENOL [Concomitant]
     Active Substance: ACETAMINOPHEN
  3. TECFIDERA [Suspect]
     Active Substance: DIMETHYL FUMARATE
     Indication: MULTIPLE SCLEROSIS
  4. VALIUM [Concomitant]
     Active Substance: DIAZEPAM

REACTIONS (4)
  - General symptom [Recovered/Resolved]
  - Kidney infection [Recovered/Resolved]
  - Cystitis [Recovered/Resolved]
  - Nephrolithiasis [Recovered/Resolved]

NARRATIVE: CASE EVENT DATE: 2014
